FAERS Safety Report 8785411 (Version 1)
Quarter: 2012Q4

REPORT INFORMATION
  Report Type: Spontaneous
  Country: US (occurrence: None)
  Receive Date: 20120904
  Receipt Date: 20120904
  Transmission Date: 20130627
  Serious: Yes (Hospitalization, Other)
  Sender: FDA-Public Use
  Company Number: ADE12-076

PATIENT
  Age: 82 Year
  Sex: Female
  Weight: 70.5 kg

DRUGS (11)
  1. HEPARIN SODIUM [Suspect]
     Indication: EMBOLISM
     Route: 042
     Dates: start: 20120718, end: 20120718
  2. COUMADIN [Concomitant]
  3. POTASSIUM CHLORIDE [Concomitant]
  4. MEMANTINE [Concomitant]
  5. LISINOPRIL [Concomitant]
  6. ATORVASTATIN [Concomitant]
  7. LASIX [Concomitant]
  8. AMIODARONE [Concomitant]
  9. LASIX [Concomitant]
  10. AMIODARONE [Concomitant]
  11. FLUTICASONE [Suspect]

REACTIONS (1)
  - Catheter site haemorrhage [None]
